FAERS Safety Report 8105370-9 (Version None)
Quarter: 2012Q1

REPORT INFORMATION
  Report Type: 
  Country: None (occurrence: None)
  Receive Date: 20120201
  Receipt Date: 20120127
  Transmission Date: 20120608
  Serious: Yes (Other)
  Sender: FDA-Public Use
  Company Number: PHHY2012MX007573

PATIENT
  Age: 76 Year
  Sex: Male

DRUGS (2)
  1. EXELON [Suspect]
     Indication: DEMENTIA ALZHEIMER'S TYPE
     Dosage: 1 PATCH (5 CM2/ 4.6 MG) PER DAY
     Route: 062
     Dates: start: 20080101
  2. HOMEOPATHIC PREPARATION [Concomitant]

REACTIONS (5)
  - AGGRESSION [None]
  - DISEASE PROGRESSION [None]
  - SCREAMING [None]
  - TOXICITY TO VARIOUS AGENTS [None]
  - FALL [None]
